FAERS Safety Report 4488301-2 (Version None)
Quarter: 2004Q4

REPORT INFORMATION
  Report Type: 
  Country: None (occurrence: None)
  Receive Date: 20041026
  Receipt Date: 20041013
  Transmission Date: 20050328
  Serious: Yes (Hospitalization, Other)
  Sender: FDA-Public Use
  Company Number: 2004065315

PATIENT
  Sex: Male

DRUGS (3)
  1. NEURONTIN [Suspect]
     Indication: NEUROPATHIC PAIN
     Dosage: 2400  MG (800 MG, 3 IN 1 D), PLACENTAL
     Route: 064
  2. CANNABIS (CANNABIS) [Suspect]
     Indication: ILL-DEFINED DISORDER
     Dosage: PLACENTAL
     Route: 064
  3. HYDROCODONE (HYDROCODONE) [Suspect]
     Indication: ILL-DEFINED DISORDER
     Dosage: PLACENTAL
     Route: 064

REACTIONS (4)
  - DRUG EXPOSURE DURING PREGNANCY [None]
  - DRUG WITHDRAWAL SYNDROME NEONATAL [None]
  - MATERNAL USE OF ILLICIT DRUGS [None]
  - PREMATURE BABY [None]
